FAERS Safety Report 16725770 (Version 4)
Quarter: 2019Q3

REPORT INFORMATION
  Report Type: Spontaneous
  Country: IE (occurrence: US)
  Receive Date: 20190821
  Receipt Date: 20190925
  Transmission Date: 20191005
  Serious: Yes (Other)
  Sender: FDA-Public Use
  Company Number: US-ASCEND THERAPEUTICS US, LLC-2073480

PATIENT
  Age: 51 Year
  Sex: Female

DRUGS (4)
  1. ESTROGEL [Suspect]
     Active Substance: ESTRADIOL
     Indication: PRODUCT USED FOR UNKNOWN INDICATION
  2. PROGESTERONE. [Suspect]
     Active Substance: PROGESTERONE
  3. ASPIRIN. [Concomitant]
     Active Substance: ASPIRIN
  4. TINZAPARIN (TINZAPARIN) [Concomitant]

REACTIONS (4)
  - Erythema nodosum [Recovering/Resolving]
  - Exposure during pregnancy [None]
  - Foetal death [Unknown]
  - Panniculitis [Unknown]
